FAERS Safety Report 15920945 (Version 2)
Quarter: 2019Q2

REPORT INFORMATION
  Report Type: Report from Study
  Country: BE (occurrence: BE)
  Receive Date: 20190205
  Receipt Date: 20190411
  Transmission Date: 20190711
  Serious: Yes (Hospitalization)
  Sender: FDA-Public Use
  Company Number: BE-PFIZER INC-2019051660

PATIENT
  Age: 49 Year
  Sex: Male
  Weight: 81.5 kg

DRUGS (18)
  1. METHOTREXATE SODIUM. [Suspect]
     Active Substance: METHOTREXATE SODIUM
     Dosage: 32.5 MG, QW
     Route: 048
     Dates: start: 20190108
  2. VINDESINE [Suspect]
     Active Substance: VINDESINE
     Dosage: 4 MG, UNK
     Route: 043
     Dates: start: 20190108, end: 20190108
  3. MERCAPTOPURINE. [Suspect]
     Active Substance: MERCAPTOPURINE
     Dosage: 100 MG, UNK
     Route: 065
     Dates: start: 20180724
  4. AMOXICLAV [Concomitant]
     Active Substance: AMOXICILLIN\CLAVULANATE POTASSIUM
  5. ACTRAPID [Concomitant]
     Active Substance: INSULIN HUMAN
  6. LYRICA [Concomitant]
     Active Substance: PREGABALIN
  7. LEDERTREXATE [METHOTREXATE SODIUM] [Concomitant]
     Dosage: UNK
     Dates: end: 20190114
  8. MEDROL [Suspect]
     Active Substance: METHYLPREDNISOLONE
     Dosage: 50 MG, UNK
     Route: 065
     Dates: start: 20190108, end: 20190114
  9. SODIUM CHLORIDE. [Concomitant]
     Active Substance: SODIUM CHLORIDE
  10. LANTUS [Concomitant]
     Active Substance: INSULIN GLARGINE
  11. XANAX [Concomitant]
     Active Substance: ALPRAZOLAM
  12. FRAXIPARINE [Concomitant]
     Active Substance: NADROPARIN CALCIUM
  13. ACICLOVIR [Concomitant]
     Active Substance: ACYCLOVIR
  14. PURINETHOL [Concomitant]
     Active Substance: MERCAPTOPURINE
     Dosage: UNK
     Dates: end: 20190114
  15. TRADONAL [Concomitant]
     Active Substance: TRAMADOL HYDROCHLORIDE
  16. DAFALGAN [Concomitant]
     Active Substance: ACETAMINOPHEN
  17. KEFZOL [Concomitant]
     Active Substance: CEFAZOLIN SODIUM
  18. PENTACARINAT [Concomitant]
     Active Substance: PENTAMIDINE ISETHIONATE

REACTIONS (1)
  - Cellulitis [Recovered/Resolved]

NARRATIVE: CASE EVENT DATE: 20190112
